FAERS Safety Report 17812206 (Version 2)
Quarter: 2020Q2

REPORT INFORMATION
  Report Type: Spontaneous
  Country: US (occurrence: US)
  Receive Date: 20200521
  Receipt Date: 20200608
  Transmission Date: 20200714
  Serious: No
  Sender: FDA-Public Use
  Company Number: US-PFIZER INC-2019494648

PATIENT
  Age: 62 Year

DRUGS (1)
  1. CHANTIX [Suspect]
     Active Substance: VARENICLINE TARTRATE
     Dosage: 1 MG, DAILY (QUANTITY FOR 90 DAYS: 90 TABLETS)

REACTIONS (2)
  - Panic reaction [Unknown]
  - Off label use [Unknown]
